FAERS Safety Report 24960978 (Version 2)
Quarter: 2025Q1

REPORT INFORMATION
  Report Type: Report from Study
  Country: US (occurrence: US)
  Receive Date: 20250212
  Receipt Date: 20250303
  Transmission Date: 20250408
  Serious: Yes (Hospitalization, Other)
  Sender: BAYER HEALTHCARE PHARMACEUTICALS INC.
  Company Number: US-BAYER-2024A143495

PATIENT
  Age: 81 Year
  Sex: Female
  Weight: 52.562 kg

DRUGS (42)
  1. ADEMPAS [Suspect]
     Active Substance: RIOCIGUAT
     Indication: Pulmonary arterial hypertension
     Route: 048
     Dates: start: 20240905
  2. ADEMPAS [Suspect]
     Active Substance: RIOCIGUAT
     Indication: Pulmonary arterial hypertension
     Dosage: 1.5 MG, TID
     Route: 048
  3. ADEMPAS [Suspect]
     Active Substance: RIOCIGUAT
     Indication: Pulmonary arterial hypertension
     Dosage: 2 MG, TID
     Route: 048
     Dates: start: 20241021
  4. ADEMPAS [Suspect]
     Active Substance: RIOCIGUAT
     Indication: Pulmonary arterial hypertension
     Dosage: 2.5 MG, TID
     Route: 048
     Dates: start: 20241021
  5. ADEMPAS [Suspect]
     Active Substance: RIOCIGUAT
     Indication: Pulmonary arterial hypertension
     Dosage: 2.5 MG, TID
     Route: 048
  6. ADEMPAS [Suspect]
     Active Substance: RIOCIGUAT
     Indication: Pulmonary arterial hypertension
     Dosage: 2.5 MG, TID
     Route: 048
  7. TYVASO [Suspect]
     Active Substance: TREPROSTINIL
     Indication: Pulmonary arterial hypertension
     Dosage: 12 ?G, QID
     Dates: start: 2024, end: 2024
  8. TYVASO [Suspect]
     Active Substance: TREPROSTINIL
     Indication: Pulmonary arterial hypertension
     Dosage: 18 ?G, QID
     Dates: start: 2024, end: 2024
  9. TYVASO [Suspect]
     Active Substance: TREPROSTINIL
     Indication: Pulmonary arterial hypertension
     Dosage: 24 ?G, QID
     Dates: start: 2024, end: 2024
  10. TYVASO [Suspect]
     Active Substance: TREPROSTINIL
     Indication: Pulmonary arterial hypertension
     Dosage: 60 ?G, QID
     Dates: start: 2024, end: 2024
  11. TYVASO [Suspect]
     Active Substance: TREPROSTINIL
     Indication: Pulmonary arterial hypertension
     Dosage: 30 ?G, QID
     Dates: start: 2024
  12. TYVASO [Suspect]
     Active Substance: TREPROSTINIL
     Indication: Pulmonary arterial hypertension
     Dosage: 72 ?G, QID
  13. TYVASO [Suspect]
     Active Substance: TREPROSTINIL
     Indication: Pulmonary arterial hypertension
     Dates: start: 20241030
  14. TYVASO [Suspect]
     Active Substance: TREPROSTINIL
     Indication: Pulmonary arterial hypertension
  15. TYVASO [Suspect]
     Active Substance: TREPROSTINIL
     Indication: Pulmonary arterial hypertension
  16. AMIODARONE HYDROCHLORIDE [Suspect]
     Active Substance: AMIODARONE HYDROCHLORIDE
     Indication: Product used for unknown indication
     Dates: start: 20241220
  17. MAGNESIUM [Concomitant]
     Active Substance: MAGNESIUM
  18. LEVOCETIRIZINE DIHYDROCHLORIDE [Concomitant]
     Active Substance: LEVOCETIRIZINE DIHYDROCHLORIDE
  19. METOPROLOL TARTRATE [Concomitant]
     Active Substance: METOPROLOL TARTRATE
  20. VITAMIN D3 [Concomitant]
     Active Substance: CHOLECALCIFEROL
  21. BREZTRI [Concomitant]
     Active Substance: BUDESONIDE\FORMOTEROL\GLYCOPYRROLATE
  22. ALBUTEROL SULFATE [Concomitant]
     Active Substance: ALBUTEROL SULFATE
  23. LASIX [Concomitant]
     Active Substance: FUROSEMIDE
  24. ELIQUIS [Concomitant]
     Active Substance: APIXABAN
  25. ALBUTEROL SULFATE [Concomitant]
     Active Substance: ALBUTEROL SULFATE
  26. MELATONIN [Concomitant]
     Active Substance: MELATONIN
  27. PROBIOTICS NOS [Concomitant]
     Active Substance: PROBIOTICS NOS
  28. CRESTOR [Concomitant]
     Active Substance: ROSUVASTATIN CALCIUM
  29. OXYGEN [Concomitant]
     Active Substance: OXYGEN
  30. LATANOPROST [Concomitant]
     Active Substance: LATANOPROST
  31. DIGOXIN [Concomitant]
     Active Substance: DIGOXIN
  32. SODIUM BICARBONATE [Concomitant]
     Active Substance: SODIUM BICARBONATE
  33. ONDANSETRON HYDROCHLORIDE [Concomitant]
     Active Substance: ONDANSETRON HYDROCHLORIDE
  34. DEXTROMETHORPHAN\GUAIFENESIN [Concomitant]
     Active Substance: DEXTROMETHORPHAN\GUAIFENESIN
  35. COLACE [Concomitant]
     Active Substance: DOCUSATE SODIUM
  36. TYLENOL EXTRA STRENGTH [Concomitant]
     Active Substance: ACETAMINOPHEN
  37. VITAMINS [Concomitant]
     Active Substance: VITAMINS
  38. PEPCID [Concomitant]
     Active Substance: FAMOTIDINE
  39. IRON [Concomitant]
     Active Substance: IRON
  40. MIDODRINE HYDROCHLORIDE [Concomitant]
     Active Substance: MIDODRINE HYDROCHLORIDE
  41. TORSEMIDE [Concomitant]
     Active Substance: TORSEMIDE
  42. ZOFRAN [Concomitant]
     Active Substance: ONDANSETRON HYDROCHLORIDE

REACTIONS (37)
  - Hospitalisation [None]
  - Loss of consciousness [None]
  - Blood pressure diastolic decreased [Not Recovered/Not Resolved]
  - Diverticulum intestinal [None]
  - Tachycardia [None]
  - Atrial fibrillation [None]
  - Pruritus [Not Recovered/Not Resolved]
  - Nausea [None]
  - Vomiting [None]
  - Constipation [None]
  - Nausea [None]
  - Retching [None]
  - Vomiting [None]
  - Abdominal pain upper [None]
  - Cough [Recovered/Resolved]
  - Vomiting [None]
  - Headache [Not Recovered/Not Resolved]
  - Nasopharyngitis [None]
  - Respiratory tract congestion [None]
  - Sneezing [None]
  - Oropharyngeal pain [None]
  - Inappropriate schedule of product administration [None]
  - Fluid retention [Recovering/Resolving]
  - Hyperactive pharyngeal reflex [None]
  - Vomiting [Not Recovered/Not Resolved]
  - Nausea [Recovering/Resolving]
  - Gastrooesophageal reflux disease [None]
  - Dizziness [None]
  - Decreased appetite [None]
  - Back pain [None]
  - Headache [None]
  - Epistaxis [None]
  - Cough [None]
  - Heart rate increased [None]
  - Nausea [None]
  - Asthenia [None]
  - Dizziness [None]

NARRATIVE: CASE EVENT DATE: 20241001
